FAERS Safety Report 6771870-7 (Version None)
Quarter: 2010Q2

REPORT INFORMATION
  Report Type: 
  Country: None (occurrence: None)
  Receive Date: 20100616
  Receipt Date: 20090826
  Transmission Date: 20101027
  Serious: No
  Sender: FDA-Public Use
  Company Number: US-ASTRAZENECA-2008UW27261

PATIENT
  Age: 84 Year
  Sex: Male

DRUGS (2)
  1. ENTOCORT EC [Suspect]
     Indication: COLITIS
     Dosage: 3 MG, 3 PILLS PER DAY
     Route: 048
     Dates: start: 20081001
  2. LISINOPRIL [Concomitant]

REACTIONS (2)
  - DRUG INEFFECTIVE [None]
  - WEIGHT DECREASED [None]
